FAERS Safety Report 6906970-1 (Version None)
Quarter: 2010Q3

REPORT INFORMATION
  Report Type: 
  Country: None (occurrence: None)
  Receive Date: 20100804
  Receipt Date: 20070815
  Transmission Date: 20110219
  Serious: No
  Sender: FDA-Public Use
  Company Number: US-PFIZER INC-2007067896

PATIENT
  Sex: Female
  Weight: 80 kg

DRUGS (4)
  1. NARDIL [Suspect]
     Indication: PANIC DISORDER
     Dates: start: 19870101
  2. XANAX [Concomitant]
  3. PROMETRIUM [Concomitant]
  4. SYNTHROID [Concomitant]

REACTIONS (2)
  - NERVOUSNESS [None]
  - TREMOR [None]
